FAERS Safety Report 6237118-7 (Version None)
Quarter: 2009Q2

REPORT INFORMATION
  Report Type: 
  Country: None (occurrence: None)
  Receive Date: 20090619
  Receipt Date: 20090605
  Transmission Date: 20091009
  Serious: No
  Sender: FDA-Public Use
  Company Number: US-ASTRAZENECA-2009UW09590

PATIENT
  Age: 69 Year
  Sex: Female
  Weight: 81.6 kg

DRUGS (7)
  1. SYMBICORT [Suspect]
     Indication: CHRONIC OBSTRUCTIVE PULMONARY DISEASE
     Route: 055
     Dates: start: 20090318
  2. FLUTICASONE [Concomitant]
     Indication: NASAL DISORDER
  3. BENADRYL [Concomitant]
  4. ALBUTEROL [Concomitant]
     Indication: ASTHMA
  5. ALBUTEROL [Concomitant]
     Indication: CHRONIC OBSTRUCTIVE PULMONARY DISEASE
  6. TRIAMCINOLONE EUCERIN FOUGERA [Concomitant]
     Indication: SKIN LESION
  7. ZOLOFT [Concomitant]
     Indication: DEPRESSION

REACTIONS (1)
  - SKIN LESION [None]
